FAERS Safety Report 14318804 (Version 1)
Quarter: 2017Q4

REPORT INFORMATION
  Report Type: Report from Study
  Country: CN (occurrence: CN)
  Receive Date: 20171222
  Receipt Date: 20171222
  Transmission Date: 20180321
  Serious: Yes (Hospitalization)
  Sender: FDA-Public Use
  Company Number: -ASTRAZENECA-2017SF30474

PATIENT
  Age: 28401 Day
  Sex: Male
  Weight: 64 kg

DRUGS (35)
  1. MEZLOCILLIN [Concomitant]
     Active Substance: MEZLOCILLIN
  2. TAMSULOSIN HYDROCHLORIDE. [Concomitant]
     Active Substance: TAMSULOSIN HYDROCHLORIDE
  3. CALCITRIOL. [Concomitant]
     Active Substance: CALCITRIOL
     Indication: BLOOD CALCIUM
     Dosage: ONGOING
  4. SALMETEROL XINAFOATE [Concomitant]
     Active Substance: SALMETEROL XINAFOATE
     Indication: CHRONIC OBSTRUCTIVE PULMONARY DISEASE
     Dosage: ONGOING
     Route: 055
     Dates: start: 20171206
  5. SYMBICORT [Suspect]
     Active Substance: BUDESONIDE\FORMOTEROL FUMARATE DIHYDRATE
     Indication: CHRONIC OBSTRUCTIVE PULMONARY DISEASE
     Route: 055
     Dates: start: 20170619
  6. ISONIAZID. [Concomitant]
     Active Substance: ISONIAZID
  7. MOXIFLOXACIN HYDROCHLORIDE. [Concomitant]
     Active Substance: MOXIFLOXACIN HYDROCHLORIDE
  8. TAMSULOSIN HYDROCHLORIDE. [Concomitant]
     Active Substance: TAMSULOSIN HYDROCHLORIDE
     Indication: PROSTATE CANCER
     Route: 048
     Dates: start: 20170603, end: 20170610
  9. PULMICORT TURBUHALER (BUDESONIDE POWDER FOR INHALATION) [Concomitant]
  10. SALMETEROL XINAFOATE [Concomitant]
     Active Substance: SALMETEROL XINAFOATE
  11. AMBROXOL HYDROCHLORIDE [Concomitant]
     Active Substance: AMBROXOL HYDROCHLORIDE
  12. LANSOPRAZOLE. [Concomitant]
     Active Substance: LANSOPRAZOLE
     Dates: start: 20171120
  13. GLUCOSAMINE [Concomitant]
     Active Substance: GLUCOSAMINE
     Dates: start: 20171120
  14. HYDROXYCHLOROQUINE SULFATE. [Concomitant]
     Active Substance: HYDROXYCHLOROQUINE SULFATE
  15. RIFAMPICIN [Concomitant]
     Active Substance: RIFAMPIN
  16. PYRAZINAMIDE. [Concomitant]
     Active Substance: PYRAZINAMIDE
  17. CEFTRIAXONE SODIUM. [Concomitant]
     Active Substance: CEFTRIAXONE SODIUM
  18. SILYMARIN PIAN [Concomitant]
  19. AMBROXOL HYDROCHLORIDE [Concomitant]
     Active Substance: AMBROXOL HYDROCHLORIDE
  20. ATORVASTATIN [Concomitant]
     Active Substance: ATORVASTATIN
  21. MELOXICAM. [Concomitant]
     Active Substance: MELOXICAM
     Dates: start: 20171120
  22. PLACENTA [Concomitant]
     Active Substance: SUS SCROFA PLACENTA
  23. RESERPINE. [Concomitant]
     Active Substance: RESERPINE
  24. PROGESTERONE. [Concomitant]
     Active Substance: PROGESTERONE
  25. IPRATROPIUM BROMIDE. [Concomitant]
     Active Substance: IPRATROPIUM BROMIDE
  26. CEFDINIR. [Concomitant]
     Active Substance: CEFDINIR
  27. VALSARTAN. [Concomitant]
     Active Substance: VALSARTAN
  28. PHLOROGLUCINOL [Concomitant]
     Active Substance: PHLOROGLUCINOL
  29. PREDNISONE. [Concomitant]
     Active Substance: PREDNISONE
  30. NIFEDIPINE. [Concomitant]
     Active Substance: NIFEDIPINE
  31. PULMICORT RESPULES [Concomitant]
     Active Substance: BUDESONIDE
  32. LEVOFLOXACIN. [Concomitant]
     Active Substance: LEVOFLOXACIN
     Dates: start: 20171122
  33. CALCIUM CARBONATE. [Concomitant]
     Active Substance: CALCIUM CARBONATE
  34. ETHAMBUTOL [Concomitant]
     Active Substance: ETHAMBUTOL HYDROCHLORIDE
  35. POTASSIUM CHLORIDE. [Concomitant]
     Active Substance: POTASSIUM CHLORIDE
     Indication: BLOOD POTASSIUM
     Route: 048
     Dates: start: 201711

REACTIONS (1)
  - Tuberculosis [Recovered/Resolved]

NARRATIVE: CASE EVENT DATE: 20171124
